FAERS Safety Report 4433681-7 (Version None)
Quarter: 2004Q3

REPORT INFORMATION
  Report Type: 
  Country: None (occurrence: None)
  Receive Date: 20040826
  Receipt Date: 20040625
  Transmission Date: 20050211
  Serious: No
  Sender: FDA-Public Use
  Company Number: US-GLAXOSMITHKLINE-A0516125A

PATIENT
  Age: 53 Year
  Sex: Male

DRUGS (5)
  1. AVODART [Suspect]
     Indication: BENIGN PROSTATIC HYPERPLASIA
     Dosage: .5MG PER DAY
     Route: 048
     Dates: start: 20040401
  2. NEURONTIN [Suspect]
     Indication: ILL-DEFINED DISORDER
  3. PRILOSEC [Concomitant]
  4. ZOCOR [Concomitant]
  5. VICODIN [Concomitant]

REACTIONS (1)
  - MUSCULOSKELETAL PAIN [None]
